FAERS Safety Report 12468121 (Version 1)
Quarter: 2016Q2

REPORT INFORMATION
  Report Type: Spontaneous
  Country: US (occurrence: US)
  Receive Date: 20160615
  Receipt Date: 20160615
  Transmission Date: 20160815
  Serious: No
  Sender: FDA-Public Use
  Company Number: PHEH2016US014849

PATIENT
  Sex: Male

DRUGS (1)
  1. VOTRIENT [Suspect]
     Active Substance: PAZOPANIB HYDROCHLORIDE
     Indication: NEOPLASM MALIGNANT
     Dosage: 4 DF, QD
     Route: 048
     Dates: start: 20160527

REACTIONS (9)
  - Dyspnoea [Not Recovered/Not Resolved]
  - Aphasia [Not Recovered/Not Resolved]
  - Myalgia [Unknown]
  - Nausea [Not Recovered/Not Resolved]
  - Fatigue [Unknown]
  - Asthenia [Unknown]
  - Motor dysfunction [Unknown]
  - Vomiting [Unknown]
  - Bone pain [Not Recovered/Not Resolved]
